FAERS Safety Report 17811606 (Version 1)
Quarter: 2020Q2

REPORT INFORMATION
  Report Type: Spontaneous
  Country: US (occurrence: US)
  Receive Date: 20200520
  Receipt Date: 20200520
  Transmission Date: 20200714
  Serious: Yes (Other)
  Sender: FDA-Public Use
  Company Number: None

PATIENT
  Sex: Male

DRUGS (2)
  1. HUMIRA [Suspect]
     Active Substance: ADALIMUMAB
     Indication: PRODUCT USED FOR UNKNOWN INDICATION
     Dosage: OTHER FREQUENCY:Q2WEEKS;?
     Route: 058
     Dates: start: 20180207
  2. ALBUTERAL [Concomitant]
     Active Substance: ALBUTEROL

REACTIONS (1)
  - Ulcer haemorrhage [None]
